FAERS Safety Report 8803407 (Version 1)
Quarter: 2012Q4

REPORT INFORMATION
  Report Type: 
  Country: US (occurrence: US)
  Receive Date: 20120924
  Receipt Date: 20120924
  Transmission Date: 20130627
  Serious: Yes (Other)
  Sender: FDA-Public Use
  Company Number: US-TEVA-360449USA

PATIENT
  Age: 7 None
  Sex: Male

DRUGS (2)
  1. TREANDA [Suspect]
     Indication: B-CELL SMALL LYMPHOCYTIC LYMPHOMA
     Dosage: 70mg/Msq./initial dose
     Route: 042
  2. RITUXIMAB [Concomitant]

REACTIONS (1)
  - Bone marrow necrosis [Not Recovered/Not Resolved]
